FAERS Safety Report 24047513 (Version 3)
Quarter: 2024Q3

REPORT INFORMATION
  Report Type: Report from Study
  Country: US (occurrence: US)
  Receive Date: 20240703
  Receipt Date: 20240826
  Transmission Date: 20241016
  Serious: Yes (Hospitalization, Other)
  Sender: JAZZ
  Company Number: USA-JP0122-2024-GWEP19022 - CANNABIDIOL IN LGS AND DS000005

PATIENT
  Age: 26 Year
  Sex: Female
  Weight: 37 kg

DRUGS (8)
  1. EPIDIOLEX [Suspect]
     Active Substance: CANNABIDIOL
     Indication: Tuberous sclerosis complex
     Dosage: 9.5 MILLILITER, BID
     Route: 048
     Dates: start: 20140401
  2. VIMPAT [Concomitant]
     Active Substance: LACOSAMIDE
     Indication: Tuberous sclerosis complex
     Dosage: 200 MILLIGRAM, BID
     Route: 048
     Dates: start: 20130927
  3. NAYZILAM [Concomitant]
     Active Substance: MIDAZOLAM
     Indication: Tuberous sclerosis complex
     Dosage: 5 MILLIGRAM
     Route: 045
     Dates: start: 20200610
  4. XCOPRI [Concomitant]
     Active Substance: CENOBAMATE
     Indication: Tuberous sclerosis complex
     Dosage: 250 MILLIGRAM, QD
     Route: 048
     Dates: start: 20210413
  5. KEPPRA [Concomitant]
     Active Substance: LEVETIRACETAM
     Indication: Tuberous sclerosis complex
     Dosage: 1500 MILLIGRAM, BID
     Route: 048
     Dates: start: 20220716
  6. CLONIDINE [Concomitant]
     Active Substance: CLONIDINE
     Indication: Sleep disorder
     Dosage: 0.2 MILLIGRAM, QD
     Route: 048
     Dates: start: 20221104
  7. APTIOM [Concomitant]
     Active Substance: ESLICARBAZEPINE ACETATE
     Indication: Tuberous sclerosis complex
     Dosage: 200 MILLIGRAM, QD
     Route: 048
     Dates: start: 20240210, end: 20240217
  8. APTIOM [Concomitant]
     Active Substance: ESLICARBAZEPINE ACETATE
     Dosage: 400 MILLIGRAM, QD
     Route: 048
     Dates: start: 20240217

REACTIONS (4)
  - Parainfluenzae virus infection [Recovering/Resolving]
  - Hypernatraemia [Recovering/Resolving]
  - Liver function test increased [Unknown]
  - Bacteraemia [Recovered/Resolved]

NARRATIVE: CASE EVENT DATE: 20240629
